FAERS Safety Report 14200112 (Version 3)
Quarter: 2017Q4

REPORT INFORMATION
  Report Type: Spontaneous
  Country: RU (occurrence: RU)
  Receive Date: 20171117
  Receipt Date: 20171229
  Transmission Date: 20180321
  Serious: Yes (Death, Life-Threatening, Other)
  Sender: FDA-Public Use
  Company Number: RU-ABBVIE-17S-251-2165951-00

PATIENT
  Age: 18 Year
  Sex: Male

DRUGS (2)
  1. ULTANE [Suspect]
     Active Substance: SEVOFLURANE
     Indication: PERFORATED ULCER
     Route: 055
     Dates: start: 20171102, end: 20171102
  2. DITILIN [Suspect]
     Active Substance: SUXAMETHONIUM IODIDE
     Indication: GENERAL ANAESTHESIA
     Route: 042
     Dates: start: 20171102, end: 20171102

REACTIONS (3)
  - Hyperthermia malignant [Recovered/Resolved]
  - Arterial perforation [Fatal]
  - Arterial perforation [Recovered/Resolved]

NARRATIVE: CASE EVENT DATE: 20171102
